FAERS Safety Report 7713375-2 (Version None)
Quarter: 2011Q3

REPORT INFORMATION
  Report Type: 
  Country: None (occurrence: None)
  Receive Date: 20110826
  Receipt Date: 20110817
  Transmission Date: 20111222
  Serious: Yes (Other)
  Sender: FDA-Public Use
  Company Number: US-BAYER-2011-023539

PATIENT
  Age: 34 Year
  Sex: Female
  Weight: 56.689 kg

DRUGS (7)
  1. DROSPIRENONE AND ETHINYL ESTRADIOL [Suspect]
     Dosage: UNK
     Dates: start: 20080801, end: 20090101
  2. BENADRYL [Concomitant]
  3. LEXAPRO [Concomitant]
     Indication: DEPRESSION
     Dosage: 10 MG, QD
     Route: 048
  4. YAZ [Suspect]
  5. ATIVAN [Concomitant]
     Dosage: 0.5 MG, QD
     Route: 048
  6. YASMIN [Suspect]
     Dosage: UNK
     Dates: start: 20090101, end: 20090901
  7. ALLEGRA [Concomitant]
     Indication: MULTIPLE ALLERGIES
     Dosage: 180 MG, QD
     Route: 048

REACTIONS (11)
  - SCAR [None]
  - DEPRESSION [None]
  - ANXIETY [None]
  - FLATULENCE [None]
  - INJURY [None]
  - ABDOMINAL DISTENSION [None]
  - DIARRHOEA [None]
  - CONSTIPATION [None]
  - CHOLECYSTITIS CHRONIC [None]
  - GALLBLADDER DISORDER [None]
  - DYSPEPSIA [None]
